FAERS Safety Report 6965382-5 (Version None)
Quarter: 2010Q3

REPORT INFORMATION
  Report Type: 
  Country: None (occurrence: None)
  Receive Date: 20100903
  Receipt Date: 20100825
  Transmission Date: 20110219
  Serious: Yes (Death, Hospitalization)
  Sender: FDA-Public Use
  Company Number: A0870869A

PATIENT
  Age: 68 Year
  Sex: Male
  Weight: 94.1 kg

DRUGS (1)
  1. AVANDIA [Suspect]
     Dosage: 8MG PER DAY
     Route: 048
     Dates: end: 20050805

REACTIONS (7)
  - ANAEMIA [None]
  - BUNDLE BRANCH BLOCK LEFT [None]
  - CARDIAC ARREST [None]
  - CARDIAC FAILURE CONGESTIVE [None]
  - DEATH [None]
  - MYOCARDIAL INFARCTION [None]
  - RESUSCITATION [None]
